FAERS Safety Report 25936242 (Version 1)
Quarter: 2025Q4

REPORT INFORMATION
  Report Type: Report from Study
  Country: EU (occurrence: EU)
  Receive Date: 20251017
  Receipt Date: 20251017
  Transmission Date: 20260117
  Serious: Yes (Death)
  Sender: ABBVIE
  Company Number: EU-ABBVIE-6507567

PATIENT
  Age: 80 Year
  Sex: Male

DRUGS (2)
  1. CARBIDOPA [Suspect]
     Active Substance: CARBIDOPA
     Indication: Parkinson^s disease
     Route: 050
     Dates: start: 20231121
  2. CARBIDOPA [Suspect]
     Active Substance: CARBIDOPA

REACTIONS (3)
  - Death [Fatal]
  - Blood test abnormal [Unknown]
  - Fall [Unknown]

NARRATIVE: CASE EVENT DATE: 20251001
